FAERS Safety Report 7596304-4 (Version None)
Quarter: 2011Q3

REPORT INFORMATION
  Report Type: 
  Country: None (occurrence: None)
  Receive Date: 20110707
  Receipt Date: 20110629
  Transmission Date: 20111222
  Serious: Yes (Other)
  Sender: FDA-Public Use
  Company Number: NL-BAXTER-2011BH015053

PATIENT
  Age: 35 Year
  Sex: Male

DRUGS (3)
  1. GAMMAGARD LIQUID [Suspect]
     Route: 042
     Dates: start: 20110412
  2. GAMMAGARD LIQUID [Suspect]
     Indication: MULTIFOCAL MOTOR NEUROPATHY
     Route: 042
     Dates: start: 20080102
  3. GAMMAGARD LIQUID [Suspect]
     Route: 042
     Dates: start: 20110322

REACTIONS (1)
  - PITUITARY TUMOUR [None]
